FAERS Safety Report 7461389-2 (Version None)
Quarter: 2011Q2

REPORT INFORMATION
  Report Type: 
  Country: None (occurrence: None)
  Receive Date: 20110506
  Receipt Date: 20110425
  Transmission Date: 20111010
  Serious: Yes (Death)
  Sender: FDA-Public Use
  Company Number: JP-CELGENEUS-087-50794-11043255

PATIENT

DRUGS (2)
  1. VIDAZA [Suspect]
     Route: 051
     Dates: start: 20110314
  2. VIDAZA [Suspect]
     Route: 051

REACTIONS (1)
  - CARDIO-RESPIRATORY ARREST [None]
